FAERS Safety Report 8417294-8 (Version None)
Quarter: 2012Q2

REPORT INFORMATION
  Report Type: 
  Country: None (occurrence: None)
  Receive Date: 20120606
  Receipt Date: 20120528
  Transmission Date: 20120825
  Serious: Yes (Other)
  Sender: FDA-Public Use
  Company Number: US-ELI_LILLY_AND_COMPANY-US201111004656

PATIENT
  Age: 55 Year
  Sex: Male

DRUGS (4)
  1. PROSTAGLANDIN E1 [Concomitant]
     Indication: ERECTILE DYSFUNCTION
     Dosage: 1 DF, UNK
  2. PAPAVERINE [Concomitant]
     Indication: ERECTILE DYSFUNCTION
  3. CIALIS [Suspect]
     Indication: ERECTILE DYSFUNCTION
     Dosage: 5 MG, QD
     Route: 048
     Dates: start: 20090901
  4. PHENTOLAMINE MESYLATE [Concomitant]
     Indication: ERECTILE DYSFUNCTION

REACTIONS (1)
  - PRIAPISM [None]
